FAERS Safety Report 20125514 (Version 2)
Quarter: 2021Q4

REPORT INFORMATION
  Report Type: Spontaneous
  Country: US (occurrence: US)
  Receive Date: 20211129
  Receipt Date: 20211201
  Transmission Date: 20220303
  Serious: Yes (Other)
  Sender: FDA-Public Use
  Company Number: US-PFIZER INC-202101594035

PATIENT
  Age: 81 Year
  Sex: Male

DRUGS (1)
  1. VYNDAMAX [Suspect]
     Active Substance: TAFAMIDIS
     Dosage: 61 MG

REACTIONS (43)
  - Cardiac amyloidosis [Unknown]
  - Cardiac failure congestive [Unknown]
  - Arrhythmia [Unknown]
  - Erectile dysfunction [Unknown]
  - Hypokalaemia [Unknown]
  - Syncope [Unknown]
  - Cervical vertebral fracture [Unknown]
  - Angina pectoris [Unknown]
  - Myelopathy [Unknown]
  - Coronary artery disease [Unknown]
  - Left ventricular hypertrophy [Unknown]
  - Type IIa hyperlipidaemia [Unknown]
  - Atrial flutter [Unknown]
  - Electrocardiogram abnormal [Unknown]
  - Hypertension [Unknown]
  - Hyperlipidaemia [Unknown]
  - Orthostatic hypotension [Unknown]
  - Pain in extremity [Unknown]
  - Carpal tunnel syndrome [Unknown]
  - Micturition urgency [Unknown]
  - Diplopia [Unknown]
  - Dizziness [Unknown]
  - Headache [Unknown]
  - Occipital neuralgia [Unknown]
  - Cervical radiculopathy [Unknown]
  - Back pain [Unknown]
  - Skin ulcer [Unknown]
  - Dyspnoea exertional [Unknown]
  - Obesity [Unknown]
  - Troponin I increased [Unknown]
  - Normocytic anaemia [Unknown]
  - Benign prostatic hyperplasia [Unknown]
  - Osteoarthritis [Unknown]
  - Generalised oedema [Unknown]
  - Spinal osteoarthritis [Unknown]
  - Chest pain [Unknown]
  - Gastrooesophageal reflux disease [Unknown]
  - Pollakiuria [Unknown]
  - Intervertebral disc protrusion [Unknown]
  - Arthritis [Unknown]
  - Spondyloarthropathy [Unknown]
  - Constipation [Unknown]
  - Abdominal pain [Unknown]
